FAERS Safety Report 9223191 (Version 2)
Quarter: 2017Q2

REPORT INFORMATION
  Report Type: Spontaneous
  Country: US (occurrence: US)
  Receive Date: 20130410
  Receipt Date: 20170406
  Transmission Date: 20170830
  Serious: Yes (Other)
  Sender: FDA-Public Use
  Company Number: US-AMGEN-USASP2013001424

PATIENT
  Age: 75 Year
  Sex: Female

DRUGS (11)
  1. PROLIA [Suspect]
     Active Substance: DENOSUMAB
     Indication: OSTEOPOROSIS POSTMENOPAUSAL
     Dosage: 60 MG, UNK
     Route: 065
     Dates: start: 20121206
  2. TRAMADOL. [Concomitant]
     Active Substance: TRAMADOL
  3. PROZAC [Concomitant]
     Active Substance: FLUOXETINE HYDROCHLORIDE
  4. CALCIUM [Concomitant]
     Active Substance: CALCIUM
     Dosage: 2000 MG, UNK
  5. VITAMIN D [Concomitant]
     Active Substance: CHOLECALCIFEROL
  6. CORGARD [Concomitant]
     Active Substance: NADOLOL
  7. PROTONIX [Concomitant]
     Active Substance: PANTOPRAZOLE SODIUM
  8. ZOCOR [Concomitant]
     Active Substance: SIMVASTATIN
  9. MUCINEX [Concomitant]
     Active Substance: GUAIFENESIN
     Indication: SINUS DISORDER
  10. VALIUM [Concomitant]
     Active Substance: DIAZEPAM
  11. PROCARDIA [Concomitant]
     Active Substance: NIFEDIPINE

REACTIONS (30)
  - Balance disorder [Unknown]
  - Pain [Unknown]
  - Myalgia [Not Recovered/Not Resolved]
  - Fatigue [Unknown]
  - Gastrointestinal haemorrhage [Unknown]
  - Fibromyalgia [Unknown]
  - Inflammation [Unknown]
  - Gastrointestinal disorder [Not Recovered/Not Resolved]
  - Thyroid disorder [Unknown]
  - Insomnia [Unknown]
  - Chondrocalcinosis pyrophosphate [Unknown]
  - Gastritis [Unknown]
  - Feeling abnormal [Unknown]
  - Sinusitis [Unknown]
  - Muscle spasms [Unknown]
  - Meniscus injury [Unknown]
  - Musculoskeletal pain [Unknown]
  - Sluggishness [Unknown]
  - Influenza like illness [Not Recovered/Not Resolved]
  - Autoimmune disorder [Unknown]
  - Abdominal pain [Unknown]
  - Chronic fatigue syndrome [Unknown]
  - Pain in extremity [Unknown]
  - Abdominal distension [Unknown]
  - Bone disorder [Unknown]
  - Accident [Unknown]
  - Unevaluable event [Unknown]
  - Dizziness [Unknown]
  - Spinal disorder [Unknown]
  - Cystitis [Unknown]

NARRATIVE: CASE EVENT DATE: 2015
